FAERS Safety Report 19634748 (Version 1)
Quarter: 2021Q3

REPORT INFORMATION
  Report Type: Other
  Country: US (occurrence: US)
  Receive Date: 20210730
  Receipt Date: 20210730
  Transmission Date: 20211014
  Serious: Yes (Other)
  Sender: FDA-Public Use
  Company Number: US-ROCHE-2878074

PATIENT
  Age: 47 Year
  Sex: Female

DRUGS (13)
  1. HYDROCHLOROTHIAZIDE. [Concomitant]
     Active Substance: HYDROCHLOROTHIAZIDE
     Dates: start: 2017
  2. OCRELIZUMAB. [Suspect]
     Active Substance: OCRELIZUMAB
     Indication: MULTIPLE SCLEROSIS
     Dosage: X1; THEN 300 MG DAY 15; THEN 600 MG Q 6 MONTHS
     Route: 042
     Dates: start: 20200228
  3. OCRELIZUMAB. [Suspect]
     Active Substance: OCRELIZUMAB
     Dosage: X1; THEN 300 MG DAY 15; THEN 600 MG Q 6 MONTHS
     Route: 042
     Dates: start: 20200313
  4. CLARITIN [Concomitant]
     Active Substance: LORATADINE
     Dates: start: 201812
  5. PROTONIX [OMEPRAZOLE] [Concomitant]
     Active Substance: OMEPRAZOLE
     Dates: start: 2013
  6. VITAMIN C [Concomitant]
     Active Substance: ASCORBIC ACID
     Dates: start: 201912
  7. PROTONIX [OMEPRAZOLE] [Concomitant]
     Active Substance: OMEPRAZOLE
     Dates: start: 2013
  8. SAXENDA [Concomitant]
     Active Substance: LIRAGLUTIDE
     Dates: start: 201912
  9. IBUPROFEN. [Concomitant]
     Active Substance: IBUPROFEN
     Dates: start: 2013
  10. PROVIGIL [Concomitant]
     Active Substance: MODAFINIL
     Dates: start: 2015
  11. BIOTIN [Concomitant]
     Active Substance: BIOTIN
     Dates: start: 201910
  12. TYLENOL [Concomitant]
     Active Substance: ACETAMINOPHEN
     Dates: start: 2013
  13. VITAMIN B COMPLEX [Concomitant]
     Active Substance: CYANOCOBALAMIN\DEXPANTHENOL\NIACINAMIDE\PYRIDOXINE HYDROCHLORIDE\RIBOFLAVIN 5^-PHOSPHATE SODIUM\THIAMINE HYDROCHLORIDE\VITAMIN B COMPLEX
     Dates: start: 2017

REACTIONS (1)
  - Urinary tract infection [Not Recovered/Not Resolved]

NARRATIVE: CASE EVENT DATE: 20200301
